FAERS Safety Report 10166822 (Version 2)
Quarter: 2014Q2

REPORT INFORMATION
  Report Type: Spontaneous
  Country: US (occurrence: US)
  Receive Date: 20140512
  Receipt Date: 20140602
  Transmission Date: 20141212
  Serious: Yes (Other)
  Sender: FDA-Public Use
  Company Number: US-BAYER-2014-066411

PATIENT
  Sex: Female

DRUGS (5)
  1. CIPRO [Suspect]
     Dosage: UNK
  2. SYMBICORT [Suspect]
     Dosage: UNK
  3. FELDENE [Concomitant]
  4. B12 [Concomitant]
     Dosage: UNK UNK, Q1MON
  5. BENADRYL [ACRIVASTINE] [Concomitant]

REACTIONS (3)
  - Diplegia [None]
  - Tendon injury [None]
  - Feeling cold [None]
